FAERS Safety Report 11363480 (Version 1)
Quarter: 2015Q3

REPORT INFORMATION
  Report Type: Spontaneous
  Country: PT (occurrence: PT)
  Receive Date: 20150811
  Receipt Date: 20150811
  Transmission Date: 20151125
  Serious: Yes (Other)
  Sender: FDA-Public Use
  Company Number: PT-ACCORD-032851

PATIENT
  Sex: Female

DRUGS (2)
  1. FLUOROURACIL ACCORD [Suspect]
     Active Substance: FLUOROURACIL
     Indication: PRODUCT USED FOR UNKNOWN INDICATION
     Dosage: FIRST CYCLE ON UNKNOWN DATE.?SECOND CYCLE ON 14-JUL-2015?CONTINUOUS INFUSION
     Route: 042
     Dates: end: 20150714
  2. LEVOFOLIC [Concomitant]
     Active Substance: LEUCOVORIN
     Route: 042
     Dates: end: 20150714

REACTIONS (4)
  - Rash [Recovered/Resolved]
  - Rash generalised [Recovered/Resolved]
  - Rash macular [Recovered/Resolved]
  - Hypertension [Recovered/Resolved]

NARRATIVE: CASE EVENT DATE: 2015
